FAERS Safety Report 9805445 (Version 1)
Quarter: 2014Q1

REPORT INFORMATION
  Report Type: Spontaneous
  Country: US (occurrence: None)
  Receive Date: 20140107
  Receipt Date: 20140107
  Transmission Date: 20141002
  Serious: Yes (Other)
  Sender: FDA-Public Use
  Company Number: 2013P1022396

PATIENT
  Age: 21 Year
  Sex: Female

DRUGS (1)
  1. MYORISAN [Suspect]
     Dates: start: 20131127

REACTIONS (1)
  - Knee operation [None]
